FAERS Safety Report 10210214 (Version 1)
Quarter: 2014Q2

REPORT INFORMATION
  Report Type: Spontaneous
  Country: US (occurrence: US)
  Receive Date: 20140602
  Receipt Date: 20140602
  Transmission Date: 20141212
  Serious: Yes (Other)
  Sender: FDA-Public Use
  Company Number: US-PAR PHARMACEUTICAL, INC-2014SCPR009109

PATIENT
  Sex: 0

DRUGS (6)
  1. POLYETHYLENE GLYCOL 3350 [Suspect]
     Indication: BOWEL PREPARATION
     Dosage: UNK UNK, UNKNOWN
     Route: 065
  2. POLYETHYLENE GLYCOL 3350 [Suspect]
     Indication: COLONOSCOPY
  3. LISINOPRIL [Suspect]
     Indication: HYPERTENSION
     Dosage: 20 MG, DAILY
     Route: 048
  4. AMLODIPINE [Concomitant]
     Indication: HYPERTENSION
     Dosage: 10 MG, DAILY
     Route: 048
  5. SYNTHROID [Concomitant]
     Indication: HYPOTHYROIDISM
     Dosage: 175 MCG, DAILY
     Route: 048
  6. FLOMAX                             /01280302/ [Concomitant]
     Indication: BENIGN PROSTATIC HYPERPLASIA
     Dosage: 0.4 MG, DAILY
     Route: 048

REACTIONS (5)
  - Inappropriate antidiuretic hormone secretion [Unknown]
  - Hyponatraemia [Recovered/Resolved]
  - Convulsion [Unknown]
  - Dysuria [Unknown]
  - Abdominal pain lower [Unknown]
